FAERS Safety Report 9188306 (Version 2)
Quarter: 2013Q2

REPORT INFORMATION
  Report Type: Spontaneous
  Country: US (occurrence: US)
  Receive Date: 20130325
  Receipt Date: 20130424
  Transmission Date: 20140414
  Serious: No
  Sender: FDA-Public Use
  Company Number: US-B.I. PHARMACEUTICALS,INC./RIDGEFIELD-2013-BI-07682BP

PATIENT
  Age: 54 Year
  Sex: Female
  Weight: 102 kg

DRUGS (7)
  1. MICARDIS HCT [Suspect]
     Indication: HYPERTENSION
     Dosage: STRENGTH: 40 MG / 12.5 MG; DAILY DOSE: 40 MG / 12.5 MG
     Route: 048
     Dates: start: 2011
  2. MICARDIS HCT [Suspect]
     Dosage: STRENGTH: 80 MG / 25 MG; DAILY DOSE: 80 MG / 25 MG
     Route: 048
     Dates: start: 20130103, end: 20130116
  3. MICARDIS HCT [Suspect]
     Dosage: STRENGTH: 40 MG / 12.5 MG; DAILY DOSE: 40 MG / 12.5 MG
     Route: 048
     Dates: start: 20130116
  4. NEXIUM [Concomitant]
     Indication: GASTROOESOPHAGEAL REFLUX DISEASE
     Dosage: 20 MG
     Dates: start: 20101005
  5. PRAVASTATIN [Concomitant]
     Indication: HYPERLIPIDAEMIA
     Dosage: 20 MG
     Dates: start: 20110613
  6. CENTRUM SILVER WITH IRON [Concomitant]
     Indication: VITAMIN SUPPLEMENTATION
     Dates: start: 2012
  7. FISH OIL [Concomitant]
     Indication: HYPERLIPIDAEMIA
     Dosage: 1000 MG

REACTIONS (10)
  - Nausea [Recovered/Resolved]
  - Nausea [Recovered/Resolved]
  - Hyperhidrosis [Recovered/Resolved]
  - Palpitations [Recovered/Resolved]
  - Chest discomfort [Recovered/Resolved]
  - Diarrhoea [Recovered/Resolved]
  - Palpitations [Recovered/Resolved]
  - Pain in extremity [Recovered/Resolved]
  - Diarrhoea [Recovered/Resolved]
  - Nausea [Recovered/Resolved]
